FAERS Safety Report 5266830-1 (Version None)
Quarter: 2007Q1

REPORT INFORMATION
  Report Type: 
  Country: None (occurrence: None)
  Receive Date: 20061213
  Receipt Date: 20040702
  Transmission Date: 20070707
  Serious: No
  Sender: FDA-Public Use
  Company Number: 2004UW13761

PATIENT
  Age: 47 Year
  Sex: Female
  Weight: 62.5964 kg

DRUGS (3)
  1. TAMOXIFEN CITRATE [Suspect]
     Indication: BREAST CANCER
  2. LOPID [Concomitant]
  3. REFLUX MEDICATION [Concomitant]

REACTIONS (1)
  - BREAST CANCER [None]
